FAERS Safety Report 24732214 (Version 1)
Quarter: 2024Q4

REPORT INFORMATION
  Report Type: Other
  Country: IN (occurrence: IN)
  Receive Date: 20241213
  Receipt Date: 20241213
  Transmission Date: 20250114
  Serious: Yes (Hospitalization)
  Sender: B BRAUN
  Company Number: IN-B.Braun Medical Inc.-2167056

PATIENT
  Age: 35 Year
  Sex: Male

DRUGS (3)
  1. LEVETIRACETAM [Suspect]
     Active Substance: LEVETIRACETAM
     Indication: Generalised tonic-clonic seizure
  2. LORAZEPAM [Suspect]
     Active Substance: LORAZEPAM
  3. FOSPHENYTOIN [Suspect]
     Active Substance: FOSPHENYTOIN

REACTIONS (1)
  - Drug ineffective [Unknown]
